FAERS Safety Report 9849517 (Version 1)
Quarter: 2014Q1

REPORT INFORMATION
  Report Type: Spontaneous
  Country: US (occurrence: None)
  Receive Date: 20140127
  Receipt Date: 20140127
  Transmission Date: 20141002
  Serious: Yes (Hospitalization)
  Sender: FDA-Public Use
  Company Number: None

PATIENT
  Age: 55 Year
  Sex: Female
  Weight: 57.15 kg

DRUGS (12)
  1. CARBOPLATIN [Suspect]
     Indication: NON-SMALL CELL LUNG CANCER
     Dosage: AUC 5 IV Q 3 WEEKS
     Route: 042
     Dates: start: 20131202, end: 20140113
  2. PEMETREXED [Suspect]
     Indication: NON-SMALL CELL LUNG CANCER
     Route: 042
     Dates: start: 20131202, end: 20140113
  3. VORINOSTAT [Suspect]
     Indication: NON-SMALL CELL LUNG CANCER
     Dosage: 100MG PO Q M-W-F
     Route: 048
     Dates: start: 20121202, end: 20140120
  4. AMBIEN [Concomitant]
  5. DURAGESIC [Concomitant]
  6. ZOFRAN [Concomitant]
  7. FOLIC ACID [Concomitant]
  8. COMPAZINE [Concomitant]
  9. OXYCODONE [Concomitant]
  10. DEXAMETHASONE [Concomitant]
  11. NICODERM CQ [Concomitant]
  12. FIORICET [Concomitant]

REACTIONS (4)
  - Nausea [None]
  - Vomiting [None]
  - Blood magnesium decreased [None]
  - Electrolyte imbalance [None]
